FAERS Safety Report 8196871-6 (Version None)
Quarter: 2012Q1

REPORT INFORMATION
  Report Type: 
  Country: None (occurrence: None)
  Receive Date: 20120309
  Receipt Date: 20120301
  Transmission Date: 20120608
  Serious: Yes (Hospitalization)
  Sender: FDA-Public Use
  Company Number: US-BAYER-2011-123177

PATIENT
  Age: 33 Year
  Sex: Female
  Weight: 91 kg

DRUGS (7)
  1. YAZ [Suspect]
     Dosage: UNK
     Route: 048
     Dates: start: 20070101, end: 20080103
  2. FEXOFENADINE HCL AND PSEUDOEPHEDRINE HCL [Concomitant]
     Indication: MULTIPLE ALLERGIES
     Dosage: UNK
     Dates: start: 20070101, end: 20080101
  3. YASMIN [Suspect]
     Dosage: UNK
     Route: 048
     Dates: start: 20070101, end: 20080103
  4. ALPRAZOLAM [Concomitant]
     Indication: DEPRESSION
     Dosage: UNK
     Dates: start: 20060101, end: 20090101
  5. SINGULAIR [Concomitant]
     Indication: DYSPNOEA
     Dosage: 10 MG, UNK
     Dates: start: 20070101
  6. ZAZOLE [Concomitant]
     Indication: FUNGAL INFECTION
     Dosage: 45 MG, ONCE
     Dates: start: 20080110, end: 20080130
  7. SERTRALINE HYDROCHLORIDE [Concomitant]
     Indication: DEPRESSION
     Dosage: 50 MG, ONCE
     Dates: start: 20070101, end: 20100101

REACTIONS (10)
  - GALLBLADDER CHOLESTEROLOSIS [None]
  - MURPHY'S SIGN POSITIVE [None]
  - ABDOMINAL PAIN [None]
  - BILIARY DYSKINESIA [None]
  - CHOLECYSTITIS CHRONIC [None]
  - HYPERPLASTIC CHOLECYSTOPATHY [None]
  - CHOLELITHIASIS [None]
  - PAIN [None]
  - INJURY [None]
  - GALLBLADDER DISORDER [None]
